FAERS Safety Report 6261093-2 (Version None)
Quarter: 2009Q3

REPORT INFORMATION
  Report Type: 
  Country: None (occurrence: None)
  Receive Date: 20090709
  Receipt Date: 20090707
  Transmission Date: 20100115
  Serious: Yes (Other)
  Sender: FDA-Public Use
  Company Number: FR-WYE-G03999209

PATIENT
  Age: 37 Year
  Sex: Female

DRUGS (2)
  1. ADVIL [Suspect]
     Dosage: UNKNOWN
     Route: 048
     Dates: start: 20090523, end: 20090525
  2. KETOPROFEN [Suspect]
     Route: 061
     Dates: start: 20090523, end: 20090525

REACTIONS (5)
  - ATOPY [None]
  - CONDITION AGGRAVATED [None]
  - DERMATITIS BULLOUS [None]
  - ERYTHEMA [None]
  - PHOTOSENSITIVITY REACTION [None]
